FAERS Safety Report 13732316 (Version 2)
Quarter: 2017Q4

REPORT INFORMATION
  Report Type: Spontaneous
  Country: US (occurrence: US)
  Receive Date: 20170707
  Receipt Date: 20171010
  Transmission Date: 20180320
  Serious: No
  Sender: FDA-Public Use
  Company Number: US-SA-2017SA074153

PATIENT
  Age: 63 Year
  Sex: Female

DRUGS (3)
  1. VISTARIL [Concomitant]
     Active Substance: HYDROXYZINE PAMOATE
     Dosage: SHOT
  2. DUPIXENT [Suspect]
     Active Substance: DUPILUMAB
     Indication: DERMATITIS ATOPIC
     Route: 058
     Dates: start: 20170419
  3. DUPIXENT [Suspect]
     Active Substance: DUPILUMAB
     Indication: IMMUNOLOGY TEST
     Route: 058
     Dates: start: 20170419

REACTIONS (6)
  - Injection site pain [Recovered/Resolved]
  - Drug effect decreased [Unknown]
  - Injection site swelling [Recovered/Resolved]
  - Rash [Unknown]
  - Injection site erythema [Recovering/Resolving]
  - Pruritus [Unknown]

NARRATIVE: CASE EVENT DATE: 2017
